FAERS Safety Report 6923469-7 (Version None)
Quarter: 2010Q3

REPORT INFORMATION
  Report Type: 
  Country: None (occurrence: None)
  Receive Date: 20100813
  Receipt Date: 20100802
  Transmission Date: 20110219
  Serious: Yes (Other)
  Sender: FDA-Public Use
  Company Number: US-PFIZER INC-2010097627

PATIENT
  Sex: Female
  Weight: 52.154 kg

DRUGS (3)
  1. CHANTIX [Suspect]
     Indication: SMOKING CESSATION THERAPY
     Dosage: UNK
     Route: 048
     Dates: start: 20100501, end: 20100101
  2. PREMARIN [Concomitant]
     Indication: HOT FLUSH
     Dosage: 0.625 MG, 1X/DAY
     Route: 048
  3. XANAX [Concomitant]
     Indication: IRRITABLE BOWEL SYNDROME
     Dosage: 0.25 MG, 1X/DAY
     Route: 048

REACTIONS (5)
  - AGITATION [None]
  - HOMICIDAL IDEATION [None]
  - MOOD ALTERED [None]
  - NERVOUSNESS [None]
  - SLEEP DISORDER [None]
